FAERS Safety Report 10223147 (Version 2)
Quarter: 2014Q2

REPORT INFORMATION
  Report Type: Spontaneous
  Country: US (occurrence: US)
  Receive Date: 20140608
  Receipt Date: 20140612
  Transmission Date: 20141212
  Serious: No
  Sender: FDA-Public Use
  Company Number: US-009507513-1405USA009493

PATIENT
  Sex: Female

DRUGS (1)
  1. NITROGLYCERIN [Suspect]

REACTIONS (1)
  - Exposure during pregnancy [Unknown]
